FAERS Safety Report 7137893-3 (Version None)
Quarter: 2010Q4

REPORT INFORMATION
  Report Type: 
  Country: None (occurrence: None)
  Receive Date: 20101206
  Receipt Date: 20101125
  Transmission Date: 20110411
  Serious: Yes (Hospitalization)
  Sender: FDA-Public Use
  Company Number: FR-PFIZER INC-2010157580

PATIENT
  Age: 56 Year
  Sex: Male

DRUGS (11)
  1. SOLU-MEDROL [Suspect]
     Dosage: UNK
  2. FLUOROURACIL [Suspect]
     Indication: HYPOPHARYNGEAL CANCER
     Dosage: 2000 MG, 4 BY CYCLES, COURSE 1
     Dates: start: 20100823
  3. CISPLATIN [Suspect]
     Indication: HYPOPHARYNGEAL CANCER
     Dosage: COURSE1, J1, 200 MG BY CYCLES
     Dates: start: 20100823
  4. ERBITUX [Suspect]
     Indication: HYPOPHARYNGEAL CANCER
     Dosage: COURSE1, J1, 800 MG BY CYCLES
     Dates: start: 20100823
  5. ZOPHREN [Suspect]
  6. EMEND [Suspect]
  7. POLARAMINE [Suspect]
  8. AERIUS [Suspect]
  9. PRIMPERAN [Suspect]
  10. CILENGITIDE [Concomitant]
     Indication: HYPOPHARYNGEAL CANCER
     Dosage: 2000 MG ON DAY 1 AND 4; OVER 1 HOUR
     Route: 042
     Dates: start: 20100823, end: 20100823
  11. CILENGITIDE [Concomitant]
     Dosage: 2000 MG AT DAY 4, DURING 1 HOUR
     Route: 042

REACTIONS (3)
  - CYTOLYTIC HEPATITIS [None]
  - HEPATITIS ACUTE [None]
  - THROMBOCYTOPENIA [None]
